FAERS Safety Report 7746456-8 (Version None)
Quarter: 2011Q3

REPORT INFORMATION
  Report Type: 
  Country: None (occurrence: None)
  Receive Date: 20110912
  Receipt Date: 20110912
  Transmission Date: 20111222
  Serious: Yes (Hospitalization)
  Sender: FDA-Public Use
  Company Number: None

PATIENT
  Sex: Male
  Weight: 81.5 kg

DRUGS (9)
  1. FENTANYL [Concomitant]
  2. HYDROCORTISONE [Concomitant]
  3. FLOMAX [Concomitant]
  4. MOTRIN [Concomitant]
  5. IBUPROFEN [Concomitant]
  6. PROCHLORPERAZINE MALEATE [Concomitant]
  7. TORISEL [Suspect]
     Indication: PROSTATE CANCER
     Dosage: 25 MG Q WEEK IV
     Route: 042
     Dates: start: 20110819, end: 20110902
  8. DIPHENHYDRAMINE HCL [Concomitant]
  9. DILAUDID [Concomitant]

REACTIONS (1)
  - SPINAL CORD COMPRESSION [None]
